FAERS Safety Report 21544202 (Version 1)
Quarter: 2022Q4

REPORT INFORMATION
  Report Type: Report from Study
  Country: US (occurrence: US)
  Receive Date: 20221102
  Receipt Date: 20221102
  Transmission Date: 20230113
  Serious: No
  Sender: FDA-Public Use
  Company Number: US-ABBVIE-22K-163-4423254-00

PATIENT
  Sex: Male
  Weight: 70.306 kg

DRUGS (4)
  1. HUMIRA [Suspect]
     Active Substance: ADALIMUMAB
     Indication: Hidradenitis
     Route: 058
     Dates: start: 202001, end: 202110
  2. HUMIRA [Suspect]
     Active Substance: ADALIMUMAB
     Dosage: CITRATE FREE
     Route: 058
  3. HUMIRA [Suspect]
     Active Substance: ADALIMUMAB
     Route: 058
     Dates: start: 202110
  4. LOSARTAN [Concomitant]
     Active Substance: LOSARTAN
     Indication: Hypertension
     Dosage: 50 MILLIGRAM
     Route: 048
     Dates: start: 2016

REACTIONS (12)
  - Haemorrhage [Not Recovered/Not Resolved]
  - Weight increased [Not Recovered/Not Resolved]
  - Skin disorder [Recovering/Resolving]
  - Skin discolouration [Recovering/Resolving]
  - Asthenia [Not Recovered/Not Resolved]
  - Skin discolouration [Not Recovered/Not Resolved]
  - Gait disturbance [Not Recovered/Not Resolved]
  - Mobility decreased [Recovering/Resolving]
  - Impaired healing [Recovering/Resolving]
  - Papule [Not Recovered/Not Resolved]
  - Pain [Not Recovered/Not Resolved]
  - Rash erythematous [Recovering/Resolving]

NARRATIVE: CASE EVENT DATE: 20190101
